FAERS Safety Report 25275043 (Version 1)
Quarter: 2025Q2

REPORT INFORMATION
  Report Type: Spontaneous
  Country: US (occurrence: US)
  Receive Date: 20250506
  Receipt Date: 20250506
  Transmission Date: 20250717
  Serious: Yes (Life-Threatening, Hospitalization, Other)
  Sender: CSL BEHRING
  Company Number: US-BEH-2025203073

PATIENT
  Age: 35 Year
  Sex: Female
  Weight: 71.655 kg

DRUGS (1)
  1. PRIVIGEN [Suspect]
     Active Substance: HUMAN IMMUNOGLOBULIN G
     Indication: Immune thrombocytopenia
     Route: 042
     Dates: start: 201203, end: 201203

REACTIONS (19)
  - Haemolytic anaemia [Recovered/Resolved with Sequelae]
  - Meningitis aseptic [Unknown]
  - Headache [Unknown]
  - Yellow skin [Unknown]
  - Swelling [Unknown]
  - Coma [Unknown]
  - Renal failure [Unknown]
  - Pancreatitis [Unknown]
  - Hepatic failure [Unknown]
  - Heart rate increased [Unknown]
  - Coeliac artery aneurysm [Unknown]
  - Post-traumatic stress disorder [Unknown]
  - Supraventricular tachycardia [Unknown]
  - Weight decreased [Unknown]
  - Wheelchair user [Unknown]
  - Haemolysis [Unknown]
  - Multiple organ dysfunction syndrome [Unknown]
  - Dropped head syndrome [Unknown]
  - Atrophy [Unknown]

NARRATIVE: CASE EVENT DATE: 20120301
